FAERS Safety Report 15644776 (Version 4)
Quarter: 2018Q4

REPORT INFORMATION
  Report Type: Spontaneous
  Country: JP (occurrence: JP)
  Receive Date: 20181121
  Receipt Date: 20181221
  Transmission Date: 20190205
  Serious: Yes (Hospitalization)
  Sender: FDA-Public Use
  Company Number: JP-GLAXOSMITHKLINE-JP2018JPN208097

PATIENT
  Age: 83 Year
  Sex: Female
  Weight: 45 kg

DRUGS (9)
  1. DIPYRIDAMOLE. [Concomitant]
     Active Substance: DIPYRIDAMOLE
     Dosage: 25 MG, TID (AFTER EACH MEAL)
     Route: 048
     Dates: start: 20181115
  2. NEXIUM CAPSULE [Concomitant]
     Dosage: 20 MG, QD (AFTER DINNER)
     Route: 048
     Dates: start: 20181115
  3. REMINYL [Concomitant]
     Active Substance: GALANTAMINE
     Dosage: 4 MG, BID (AFTER BREAKFAST AND DINNER)
     Route: 048
     Dates: start: 20181115
  4. JUVELA N [Concomitant]
     Active Substance: TOCOPHERYL NICOTINATE, D-.ALPHA.
     Dosage: 200 MG, TID (AFTER EACH MEAL)
     Route: 048
     Dates: start: 20181115
  5. MIYA-BM FINE GRANULES [Concomitant]
     Dosage: 1 G, TID (AFTER EACH MEAL)
     Route: 048
     Dates: start: 20181115
  6. VALTREX [Suspect]
     Active Substance: VALACYCLOVIR HYDROCHLORIDE
     Indication: HERPES ZOSTER
     Dosage: 1000 MG, QD
     Route: 048
     Dates: start: 20181112, end: 20181118
  7. STADERM CREAM [Concomitant]
     Dosage: UNK, PRN
     Route: 050
  8. AMLODIN [Concomitant]
     Active Substance: AMLODIPINE BESYLATE
     Dosage: 5 MG, QD (AFTER BREAKFAST)
     Route: 048
     Dates: start: 20181115
  9. PURSENNID TABLETS [Concomitant]
     Indication: CONSTIPATION
     Dosage: 24 MG, PRN
     Route: 048

REACTIONS (5)
  - Urinary tract infection [Recovered/Resolved]
  - Wrong technique in product usage process [Unknown]
  - Chromaturia [Recovered/Resolved]
  - Pyrexia [Recovered/Resolved]
  - Off label use [Unknown]

NARRATIVE: CASE EVENT DATE: 20181111
